FAERS Safety Report 12535079 (Version 1)
Quarter: 2016Q3

REPORT INFORMATION
  Report Type: Spontaneous
  Country: US (occurrence: US)
  Receive Date: 20160707
  Receipt Date: 20160707
  Transmission Date: 20161109
  Serious: No
  Sender: FDA-Public Use
  Company Number: US-AMGEN-USASP2016085796

PATIENT
  Age: 89 Year
  Sex: Female

DRUGS (1)
  1. ENBREL [Suspect]
     Active Substance: ETANERCEPT
     Indication: ARTHRITIS
     Dosage: 50 MG, EVERY WEEK
     Route: 065
     Dates: start: 2007

REACTIONS (4)
  - Pruritus generalised [Unknown]
  - Injection site pruritus [Unknown]
  - Paraesthesia oral [Unknown]
  - Injection site irritation [Unknown]

NARRATIVE: CASE EVENT DATE: 2016
